FAERS Safety Report 7132573-2 (Version None)
Quarter: 2010Q4

REPORT INFORMATION
  Report Type: 
  Country: None (occurrence: None)
  Receive Date: 20101202
  Receipt Date: 20101122
  Transmission Date: 20110411
  Serious: Yes (Hospitalization, Other)
  Sender: FDA-Public Use
  Company Number: FR-NOVOPROD-303483

PATIENT
  Sex: Male
  Weight: 64 kg

DRUGS (6)
  1. LIRAGLUTIDE FLEXPEN [Suspect]
     Indication: TYPE 2 DIABETES MELLITUS
     Dosage: 1.8 MG, QD
     Route: 058
     Dates: start: 20090513
  2. METFORMIN [Concomitant]
  3. GLUCOPHAGE [Concomitant]
     Dosage: 1000 MG, TID
  4. VASTEN                             /00880402/ [Concomitant]
     Dosage: 20 UNK, QD
  5. KARDEGIC                           /00002703/ [Concomitant]
     Dosage: 75 UNK, QD
  6. STILNOX                            /00914901/ [Concomitant]
     Dosage: 10 UNK, QD

REACTIONS (1)
  - ECZEMA [None]
